FAERS Safety Report 15165543 (Version 1)
Quarter: 2018Q3

REPORT INFORMATION
  Report Type: Spontaneous
  Country: US (occurrence: US)
  Receive Date: 20180719
  Receipt Date: 20180719
  Transmission Date: 20181010
  Serious: No
  Sender: FDA-Public Use
  Company Number: US-PRINSTON PHARMACEUTICAL INC.-2017PRN00567

PATIENT
  Sex: Female

DRUGS (1)
  1. LOSARTAN POTASSIUM. [Suspect]
     Active Substance: LOSARTAN POTASSIUM
     Dosage: UNK UNK, 2X/DAY

REACTIONS (4)
  - Heart rate increased [Unknown]
  - Chest pain [Unknown]
  - Weight increased [Not Recovered/Not Resolved]
  - Palpitations [Unknown]
